FAERS Safety Report 24959269 (Version 1)
Quarter: 2025Q1

REPORT INFORMATION
  Report Type: Spontaneous
  Country: CA (occurrence: CA)
  Receive Date: 20250212
  Receipt Date: 20250212
  Transmission Date: 20250409
  Serious: Yes (Life-Threatening, Hospitalization, Other)
  Sender: UNICHEM
  Company Number: CA-UNICHEM LABORATORIES LIMITED-UNI-2025-CA-000223

PATIENT

DRUGS (3)
  1. CARBAMAZEPINE [Suspect]
     Active Substance: CARBAMAZEPINE
     Indication: Product used for unknown indication
     Route: 065
  2. TRANDOLAPRIL [Concomitant]
     Active Substance: TRANDOLAPRIL
     Indication: Hypertension
     Route: 065
  3. ROSUVASTATIN [Concomitant]
     Active Substance: ROSUVASTATIN
     Indication: Dyslipidaemia
     Route: 065

REACTIONS (8)
  - Intentional overdose [Unknown]
  - Toxicity to various agents [Recovering/Resolving]
  - Suicide attempt [Unknown]
  - Condition aggravated [Recovering/Resolving]
  - Encephalopathy [Recovering/Resolving]
  - Generalised tonic-clonic seizure [Recovering/Resolving]
  - Therapy non-responder [Recovering/Resolving]
  - Coma scale abnormal [Recovering/Resolving]
